FAERS Safety Report 6761975-9 (Version None)
Quarter: 2010Q2

REPORT INFORMATION
  Report Type: 
  Country: None (occurrence: None)
  Receive Date: 20100609
  Receipt Date: 20100602
  Transmission Date: 20101027
  Serious: Yes (Death, Hospitalization)
  Sender: FDA-Public Use
  Company Number: US-BAYER-201021873NA

PATIENT
  Age: 38 Year
  Sex: Female

DRUGS (7)
  1. FLUDARA [Suspect]
     Indication: CHRONIC MYELOID LEUKAEMIA
     Dosage: AS USED: 80 MG
     Route: 042
     Dates: start: 20100423, end: 20100426
  2. NEUPOGEN [Suspect]
     Indication: CHRONIC MYELOID LEUKAEMIA
     Dosage: AS USED: 780 ?G
     Route: 058
     Dates: start: 20100420, end: 20100425
  3. PLERIXAFOR [Suspect]
     Indication: CHRONIC MYELOID LEUKAEMIA
     Dosage: AS USED: 112 MG
     Route: 058
     Dates: start: 20100422, end: 20100425
  4. BUSULFEX [Suspect]
     Indication: CHRONIC MYELOID LEUKAEMIA
     Dosage: AS USED: 230 MG
     Route: 042
     Dates: start: 20100423, end: 20100426
  5. ANTI-THYMOCYTE GLOBULIN NOS [Suspect]
     Indication: CHRONIC MYELOID LEUKAEMIA
     Dosage: TOTAL DAILY DOSE: 46 MG
     Dates: start: 20100426, end: 20100426
  6. ANTI-THYMOCYTE GLOBULIN NOS [Suspect]
     Dosage: TOTAL DAILY DOSE: 138 MG
     Dates: start: 20100427, end: 20100427
  7. ANTI-THYMOCYTE GLOBULIN NOS [Suspect]
     Dosage: TOTAL DAILY DOSE: 184 MG
     Dates: start: 20100428, end: 20100428

REACTIONS (1)
  - CEREBRAL HAEMORRHAGE [None]
